FAERS Safety Report 20950642 (Version 1)
Quarter: 2022Q2

REPORT INFORMATION
  Report Type: Spontaneous
  Country: US (occurrence: US)
  Receive Date: 20220613
  Receipt Date: 20220613
  Transmission Date: 20220721
  Serious: Yes (Hospitalization, Other)
  Sender: FDA-Public Use
  Company Number: US-Accord-265821

PATIENT
  Age: 31 Year
  Sex: Female
  Weight: 71.21 kg

DRUGS (12)
  1. CLONAZEPAM [Suspect]
     Active Substance: CLONAZEPAM
     Indication: Product used for unknown indication
  2. MIFEPRISTONE [Suspect]
     Active Substance: MIFEPRISTONE
     Indication: Cushing^s syndrome
     Dosage: QD
     Route: 048
     Dates: start: 20211112, end: 20211124
  3. PAXIL [Suspect]
     Active Substance: PAROXETINE HYDROCHLORIDE
     Indication: Product used for unknown indication
     Dates: end: 20220519
  4. BUSPIRONE [Concomitant]
     Active Substance: BUSPIRONE HYDROCHLORIDE
  5. HUMIRA [Concomitant]
     Active Substance: ADALIMUMAB
  6. LORATADINE [Concomitant]
     Active Substance: LORATADINE
  7. ATORVASTATIN [Concomitant]
     Active Substance: ATORVASTATIN
  8. LYRICA [Concomitant]
     Active Substance: PREGABALIN
  9. NORCO [Concomitant]
     Active Substance: ACETAMINOPHEN\HYDROCODONE BITARTRATE
  10. OMEPRAZOLE [Concomitant]
     Active Substance: OMEPRAZOLE
  11. VITAMIN B [Concomitant]
     Active Substance: VITAMIN B
  12. VITAMIN D NOS [Concomitant]
     Active Substance: VITAMIN D NOS

REACTIONS (6)
  - Suicidal behaviour [Unknown]
  - Behaviour disorder [Unknown]
  - Weight increased [Unknown]
  - Increased appetite [Unknown]
  - Decreased appetite [Unknown]
  - Weight decreased [Unknown]
